FAERS Safety Report 12604597 (Version 7)
Quarter: 2018Q4

REPORT INFORMATION
  Report Type: Spontaneous
  Country: FR (occurrence: FR)
  Receive Date: 20160728
  Receipt Date: 20181016
  Transmission Date: 20190204
  Serious: Yes (Hospitalization, Other)
  Sender: FDA-Public Use
  Company Number: FR-PFIZER INC-2016355691

PATIENT
  Age: 76 Year
  Sex: Female

DRUGS (19)
  1. ADIAZINE [Suspect]
     Active Substance: SULFADIAZINE
     Dosage: 1000 MG, 1X/DAY
     Route: 048
  2. CORTANCYL [Suspect]
     Active Substance: PREDNISONE
     Dosage: 9 MG, 1X/DAY
     Route: 048
  3. OXYNORM [Suspect]
     Active Substance: OXYCODONE HYDROCHLORIDE
     Indication: PAIN
     Dosage: 5 MG, 1X/DAY
     Route: 048
  4. RISPERDAL [Suspect]
     Active Substance: RISPERIDONE
     Dosage: 0.25 MG, 1X/DAY
     Route: 048
     Dates: end: 20160705
  5. RAMIPRIL. [Suspect]
     Active Substance: RAMIPRIL
     Dosage: 2.5 MG, 1X/DAY
     Route: 048
  6. OXYCONTIN [Suspect]
     Active Substance: OXYCODONE HYDROCHLORIDE
     Indication: PAIN
     Dosage: 30 MG, 1X/DAY
     Route: 048
  7. BISOCE [Suspect]
     Active Substance: BISOPROLOL
     Indication: CARDIAC FAILURE
     Dosage: 1.25 MG, 1X/DAY
     Route: 048
  8. NOVATREX NOS [Suspect]
     Active Substance: AZITHROMYCIN OR METHOTREXATE SODIUM
     Indication: RHEUMATOID ARTHRITIS
     Dosage: 4 TABLETS OF 2.5 MG, WEEKLY
     Route: 048
     Dates: end: 20160705
  9. MIRTAZAPINE. [Suspect]
     Active Substance: MIRTAZAPINE
     Indication: DEPRESSION
     Dosage: 15 MG, 1X/DAY
     Route: 048
  10. FOLIC ACID. [Suspect]
     Active Substance: FOLIC ACID
     Indication: FOLATE DEFICIENCY
     Dosage: 2 TABLETS OF 5 MG, WEEKLY
     Route: 048
  11. LYRICA [Suspect]
     Active Substance: PREGABALIN
     Indication: ANXIETY
     Dosage: 150 MG, 1X/DAY
     Route: 048
     Dates: end: 20160705
  12. ORENCIA [Suspect]
     Active Substance: ABATACEPT
     Indication: RHEUMATOID ARTHRITIS
     Dosage: 500 MG, MONTHLY
     Route: 042
     Dates: start: 2014
  13. ORENCIA [Suspect]
     Active Substance: ABATACEPT
     Dosage: UNK
  14. PHOSPHONEUROS [Suspect]
     Active Substance: CALCIUM PHOSPHATE, DIBASIC, ANHYDROUS\MAGNESIUM GLYCEROPHOSPHATE\PHOSPHORIC ACID\SODIUM PHOSPHATE, DIBASIC
     Dosage: 100 MG, 1X/DAY
     Route: 048
     Dates: end: 20160705
  15. KARDEGIC [Suspect]
     Active Substance: ASPIRIN DL-LYSINE
     Dosage: 75 MG, 1X/DAY
     Route: 048
  16. SERTRALINE HCL [Suspect]
     Active Substance: SERTRALINE HYDROCHLORIDE
     Indication: DEPRESSION
     Dosage: 25 MG, 1X/DAY
     Route: 048
  17. PANTOPRAZOLE [Suspect]
     Active Substance: PANTOPRAZOLE
     Indication: GASTROOESOPHAGEAL REFLUX DISEASE
     Dosage: 20 MG, 1X/DAY
  18. MALOCIDE /00112501/ [Suspect]
     Active Substance: PYRIMETHAMINE
     Dosage: 50 MG, 1X/DAY
     Route: 048
     Dates: end: 20160705
  19. ALPRAZOLAM. [Suspect]
     Active Substance: ALPRAZOLAM
     Indication: ANXIETY
     Dosage: 0.25 MG, 1X/DAY
     Route: 048

REACTIONS (3)
  - Pancytopenia [Recovered/Resolved]
  - Myelodysplastic syndrome [Not Recovered/Not Resolved]
  - Bone marrow failure [Recovered/Resolved]

NARRATIVE: CASE EVENT DATE: 201607
